FAERS Safety Report 7626778-1 (Version None)
Quarter: 2011Q3

REPORT INFORMATION
  Report Type: 
  Country: None (occurrence: None)
  Receive Date: 20110721
  Receipt Date: 20110714
  Transmission Date: 20111222
  Serious: Yes (Hospitalization)
  Sender: FDA-Public Use
  Company Number: US-SANOFI-AVENTIS-2011SA045218

PATIENT
  Age: 79 Year
  Sex: Male

DRUGS (5)
  1. SOLOSTAR [Suspect]
     Indication: DIABETES MELLITUS
  2. MULTI-VITAMINS [Concomitant]
  3. LANTUS [Suspect]
     Indication: DIABETES MELLITUS
     Dosage: SLIDING SCALE
     Route: 058
  4. SOLOSTAR [Suspect]
  5. LANTUS [Suspect]
     Dosage: SLIDING SCALE
     Route: 058

REACTIONS (1)
  - CARDIAC FAILURE [None]
